FAERS Safety Report 8138847-0 (Version None)
Quarter: 2012Q1

REPORT INFORMATION
  Report Type: 
  Country: None (occurrence: None)
  Receive Date: 20120215
  Receipt Date: 20120203
  Transmission Date: 20120608
  Serious: Yes (Hospitalization)
  Sender: FDA-Public Use
  Company Number: JP-ELI_LILLY_AND_COMPANY-JP201111002500

PATIENT
  Age: 80 Year
  Sex: Female

DRUGS (3)
  1. FORTEO [Suspect]
     Dosage: UNK UNK, EACH MORNING
     Route: 058
     Dates: start: 20110916
  2. FORTEO [Suspect]
     Dosage: UNK
     Route: 058
  3. FORTEO [Suspect]
     Dosage: UNK, EACH EVENING
     Route: 058

REACTIONS (9)
  - MUSCULOSKELETAL PAIN [None]
  - EXPIRED DRUG ADMINISTERED [None]
  - EYE OPERATION [None]
  - DRUG DOSE OMISSION [None]
  - MALAISE [None]
  - DIZZINESS [None]
  - PYREXIA [None]
  - NECK PAIN [None]
  - ABDOMINAL DISCOMFORT [None]
